FAERS Safety Report 12894194 (Version 3)
Quarter: 2017Q4

REPORT INFORMATION
  Report Type: Spontaneous
  Country: US (occurrence: US)
  Receive Date: 20161028
  Receipt Date: 20171121
  Transmission Date: 20180320
  Serious: Yes (Other)
  Sender: FDA-Public Use
  Company Number: US-SAOL THERAPEUTICS-2016SAO00931

PATIENT
  Age: 30 Year
  Sex: Male

DRUGS (7)
  1. COMPOUNDED BACLOFEN [Suspect]
     Active Substance: BACLOFEN
     Indication: MUSCLE SPASTICITY
     Dosage: 951 ?G, \DAY
     Dates: end: 201610
  2. DILAUDID [Suspect]
     Active Substance: HYDROMORPHONE HYDROCHLORIDE
     Dosage: 3.8 MG, \DAY
  3. COMPOUNDED BACLOFEN [Suspect]
     Active Substance: BACLOFEN
     Dosage: 903 ?G, \DAY
     Dates: start: 201610, end: 20161111
  4. FENTANYL. [Suspect]
     Active Substance: FENTANYL
     Dosage: 180 ?G, \DAY
  5. UNSPECIFIED ORAL MEDICATIONS [Concomitant]
     Route: 048
  6. COMPOUNDED BACLOFEN [Suspect]
     Active Substance: BACLOFEN
     Dosage: 771.2 ?G, \DAY
     Dates: start: 20161111
  7. CLONIDINE. [Suspect]
     Active Substance: CLONIDINE
     Dosage: 81 ?G, \DAY

REACTIONS (3)
  - Muscle spasticity [Recovering/Resolving]
  - Spinal operation [Recovered/Resolved]
  - Somnolence [Recovering/Resolving]

NARRATIVE: CASE EVENT DATE: 2015
